FAERS Safety Report 18732958 (Version 2)
Quarter: 2021Q1

REPORT INFORMATION
  Report Type: Report from Study
  Country: None (occurrence: BE)
  Receive Date: 20210113
  Receipt Date: 20210311
  Transmission Date: 20210419
  Serious: Yes (Hospitalization)
  Sender: FDA-Public Use
  Company Number: BE-ABBVIE-20K-013-3675152-00

PATIENT
  Age: 72 Year
  Sex: Female
  Weight: 60 kg

DRUGS (10)
  1. SEROQUEL [Concomitant]
     Active Substance: QUETIAPINE FUMARATE
     Indication: PSYCHIATRIC DISORDER PROPHYLAXIS
     Route: 048
  2. DUODOPA [Suspect]
     Active Substance: CARBIDOPA\LEVODOPA
     Dosage: MD= 0.0 ML, CD= 3.4 ML/HR DURING 16HRS, ED= 2.0 ML
     Route: 050
     Dates: start: 20200909, end: 20201130
  3. PAROXETINE. [Concomitant]
     Active Substance: PAROXETINE
     Route: 048
  4. DUODOPA [Suspect]
     Active Substance: CARBIDOPA\LEVODOPA
     Dosage: MD 0.0 ML, CD 3.7 ML/HR DURING 16HRS, ED 2.5 ML.
     Route: 050
     Dates: start: 20210308
  5. NORTRILEN [Concomitant]
     Active Substance: NORTRIPTYLINE
     Indication: ANXIETY
  6. DUODOPA [Suspect]
     Active Substance: CARBIDOPA\LEVODOPA
     Indication: PARKINSON^S DISEASE
     Dosage: UNKNOWN DOSAGES
     Route: 050
     Dates: start: 20191125, end: 20200909
  7. XANAX [Concomitant]
     Active Substance: ALPRAZOLAM
     Indication: ANXIETY
     Dosage: RETARD
     Route: 048
  8. DUODOPA [Suspect]
     Active Substance: CARBIDOPA\LEVODOPA
     Dosage: MD 0.0 ML, CD 3.7 ML/HR DURING 16HRS, ED 2.0 ML.
     Route: 050
     Dates: start: 20201130, end: 20210308
  9. PAROXETINE. [Concomitant]
     Active Substance: PAROXETINE
     Indication: ANTIDEPRESSANT THERAPY
  10. PROLOPA [Concomitant]
     Active Substance: BENSERAZIDE\LEVODOPA
     Indication: PARKINSON^S DISEASE
     Dosage: FORM STRENGTH: 100MG/25MG
     Route: 048

REACTIONS (11)
  - On and off phenomenon [Recovered/Resolved]
  - Anxiety [Not Recovered/Not Resolved]
  - Dyskinesia [Recovered/Resolved]
  - Fatigue [Unknown]
  - Restless legs syndrome [Recovered/Resolved]
  - Pyrexia [Unknown]
  - SARS-CoV-2 test positive [Recovered/Resolved]
  - Overdose [Unknown]
  - Therapeutic product effect incomplete [Unknown]
  - Dyspnoea [Unknown]
  - Drug ineffective [Recovered/Resolved]

NARRATIVE: CASE EVENT DATE: 2020
